FAERS Safety Report 11690550 (Version 1)
Quarter: 2015Q4

REPORT INFORMATION
  Report Type: Spontaneous
  Country: US (occurrence: US)
  Receive Date: 20151102
  Receipt Date: 20151102
  Transmission Date: 20160304
  Serious: No
  Sender: FDA-Public Use
  Company Number: US-BAYER-2015-449464

PATIENT
  Age: 45 Year
  Sex: Female

DRUGS (1)
  1. CLIMARA [Suspect]
     Active Substance: ESTRADIOL
     Indication: HORMONE REPLACEMENT THERAPY
     Dosage: 0.037 MG, UNK
     Route: 062
     Dates: start: 2015

REACTIONS (4)
  - Feeling abnormal [None]
  - Anxiety [None]
  - Hot flush [None]
  - Product adhesion issue [None]

NARRATIVE: CASE EVENT DATE: 2015
